FAERS Safety Report 6156204-3 (Version None)
Quarter: 2009Q2

REPORT INFORMATION
  Report Type: 
  Country: None (occurrence: None)
  Receive Date: 20090415
  Receipt Date: 20090408
  Transmission Date: 20091009
  Serious: Yes (Death)
  Sender: FDA-Public Use
  Company Number: KR-PFIZER INC-2009180364

PATIENT

DRUGS (3)
  1. ATORVASTATIN CALCIUM [Suspect]
     Dosage: 40 MG, 1X/DAY
     Dates: start: 20090305
  2. NITROGLYCERIN [Concomitant]
     Dosage: UNK
     Route: 042
     Dates: start: 20090303, end: 20090304
  3. SALBUTAMOL [Concomitant]
     Dosage: UNK
     Dates: start: 20090306, end: 20090308

REACTIONS (1)
  - ANGINA UNSTABLE [None]
